FAERS Safety Report 5814488-2 (Version None)
Quarter: 2008Q3

REPORT INFORMATION
  Report Type: 
  Country: None (occurrence: None)
  Receive Date: 20080718
  Receipt Date: 20080718
  Transmission Date: 20090109
  Serious: Yes (Hospitalization)
  Sender: FDA-Public Use
  Company Number: None

PATIENT
  Age: 64 Year
  Sex: Male

DRUGS (2)
  1. HEPARIN [Suspect]
     Indication: DEEP VEIN THROMBOSIS
     Dosage: VARIES BOLUS IV
     Route: 040
     Dates: start: 20080701, end: 20080712
  2. HEPARIN [Suspect]
     Indication: DEEP VEIN THROMBOSIS
     Dosage: TITRATE GTT IV
     Route: 042
     Dates: start: 20080701, end: 20080712

REACTIONS (1)
  - PLATELET COUNT DECREASED [None]
